FAERS Safety Report 5118371-X (Version None)
Quarter: 2006Q4

REPORT INFORMATION
  Report Type: 
  Country: None (occurrence: None)
  Receive Date: 20061002
  Receipt Date: 20060801
  Transmission Date: 20070319
  Serious: Yes (Hospitalization)
  Sender: FDA-Public Use
  Company Number: DEWYE378227JUL06

PATIENT
  Sex: Female
  Weight: 79 kg

DRUGS (12)
  1. ENBREL [Suspect]
     Indication: RHEUMATOID ARTHRITIS
     Route: 058
     Dates: start: 20050922
  2. METHOTREXATE [Suspect]
     Route: 048
  3. FOLIC ACID [Concomitant]
  4. ASPIRIN [Concomitant]
  5. BELOC ZOK [Concomitant]
  6. HYDROCHLOROTHIAZDE TAB [Concomitant]
  7. GLUCOPHAGE [Concomitant]
  8. INSULIN HUMAN INJECTION [Concomitant]
  9. ISOPHANE INSULIN [Concomitant]
  10. DECORTIN-H [Concomitant]
  11. PROXEN [Concomitant]
     Dates: start: 20050907
  12. ZOCOR [Concomitant]

REACTIONS (1)
  - GASTRITIS [None]
